FAERS Safety Report 6634581-4 (Version None)
Quarter: 2010Q1

REPORT INFORMATION
  Report Type: 
  Country: None (occurrence: None)
  Receive Date: 20100315
  Receipt Date: 20100309
  Transmission Date: 20100710
  Serious: Yes (Other)
  Sender: FDA-Public Use
  Company Number: A0849177A

PATIENT
  Age: 62 Year
  Sex: Female

DRUGS (4)
  1. ADVAIR DISKUS 100/50 [Suspect]
     Indication: ASTHMA
     Dosage: 2PUFF TWICE PER DAY
     Route: 055
     Dates: start: 20090901
  2. FLOVENT [Suspect]
     Indication: ASTHMA
     Dosage: 2PUFF TWICE PER DAY
     Route: 055
     Dates: start: 20050301, end: 20090901
  3. MYLANTA [Concomitant]
  4. REFRESH EYE DROPS [Concomitant]

REACTIONS (4)
  - CATARACT [None]
  - DRY EYE [None]
  - EYE INFECTION [None]
  - VISION BLURRED [None]
